FAERS Safety Report 7672324-6 (Version None)
Quarter: 2011Q3

REPORT INFORMATION
  Report Type: 
  Country: None (occurrence: None)
  Receive Date: 20110809
  Receipt Date: 20110803
  Transmission Date: 20111222
  Serious: Yes (Life-Threatening, Hospitalization)
  Sender: FDA-Public Use
  Company Number: JP-PFIZER INC-2010055145

PATIENT
  Age: 45 Year
  Sex: Female
  Weight: 68 kg

DRUGS (17)
  1. FLUOROURACIL [Suspect]
     Dosage: 700 MG, 1X/3 WEEK
     Route: 042
     Dates: start: 20090310, end: 20090310
  2. CYCLOPHOSPHAMIDE [Suspect]
     Dosage: 700 MG, 1X/3WEEK
     Route: 041
     Dates: start: 20090217, end: 20090217
  3. CYCLOPHOSPHAMIDE [Suspect]
     Dosage: 700 MG, 1X/3WEEK
     Route: 041
     Dates: start: 20090310, end: 20090310
  4. DECADRON [Suspect]
     Dosage: 16.5 MG, 1X/3WEEK
     Route: 042
     Dates: start: 20090217, end: 20090217
  5. NEUTROGIN [Concomitant]
     Indication: NEUTROPENIA
     Dosage: 0.1 MG, 17 TIMES IN TOTAL
     Route: 058
     Dates: start: 20090120, end: 20090327
  6. FLUOROURACIL [Suspect]
     Indication: BREAST CANCER
     Dosage: 700 MG, 1X/3 WEEK
     Route: 042
     Dates: start: 20090106, end: 20090106
  7. FLUOROURACIL [Suspect]
     Dosage: 700 MG, 1X/3 WEEK
     Route: 042
     Dates: start: 20090127, end: 20090127
  8. EPIRUBICIN HYDROCHLORIDE [Suspect]
     Dosage: 140 MG, 1X/3WEEKS
     Route: 042
     Dates: start: 20090217, end: 20090217
  9. CYCLOPHOSPHAMIDE [Suspect]
     Indication: BREAST CANCER
     Dosage: 700 MG, 1X/3WEEK
     Route: 041
     Dates: start: 20090106, end: 20090106
  10. EPIRUBICIN HYDROCHLORIDE [Suspect]
     Indication: BREAST CANCER
     Dosage: 140 MG, 1X/3WEEKS
     Route: 042
     Dates: start: 20090106, end: 20090106
  11. DECADRON [Suspect]
     Dosage: 16.5 MG, 1X/3WEEK
     Route: 042
     Dates: start: 20090127, end: 20090127
  12. EPIRUBICIN HYDROCHLORIDE [Suspect]
     Dosage: 140 MG, 1X/3WEEKS
     Route: 042
     Dates: start: 20090127, end: 20090127
  13. EPIRUBICIN HYDROCHLORIDE [Suspect]
     Dosage: 140 MG, 1X/3WEEKS
     Route: 042
     Dates: start: 20090310, end: 20090310
  14. FLUOROURACIL [Suspect]
     Dosage: 700 MG, 1X/3 WEEK
     Route: 042
     Dates: start: 20090217, end: 20090217
  15. DECADRON [Suspect]
     Indication: BREAST CANCER
     Dosage: 16.5 MG, 1X/3WEEK
     Route: 042
     Dates: start: 20090106, end: 20090106
  16. DECADRON [Suspect]
     Dosage: 16.5 MG, 1X/3WEEK
     Route: 042
     Dates: start: 20090310, end: 20090310
  17. CYCLOPHOSPHAMIDE [Suspect]
     Dosage: 700 MG, 1X/3WEEK
     Route: 041
     Dates: start: 20090127, end: 20090127

REACTIONS (1)
  - HEPATITIS B [None]
